FAERS Safety Report 21493323 (Version 3)
Quarter: 2022Q4

REPORT INFORMATION
  Report Type: Spontaneous
  Country: JP (occurrence: JP)
  Receive Date: 20221021
  Receipt Date: 20221118
  Transmission Date: 20230112
  Serious: No
  Sender: FDA-Public Use
  Company Number: JP-DSJP-DSJ-2022-137878

PATIENT
  Age: 78 Year
  Sex: Female
  Weight: 45.9 kg

DRUGS (3)
  1. ENHERTU [Suspect]
     Active Substance: FAM-TRASTUZUMAB DERUXTECAN-NXKI
     Indication: Adenocarcinoma gastric
     Dosage: 300 MG, ONCE EVERY 3 WK
     Route: 041
     Dates: start: 20220804, end: 20220804
  2. ENHERTU [Suspect]
     Active Substance: FAM-TRASTUZUMAB DERUXTECAN-NXKI
     Dosage: 250 MG, ONCE EVERY 3 WK
     Route: 041
     Dates: start: 20220915, end: 20220915
  3. ENHERTU [Suspect]
     Active Substance: FAM-TRASTUZUMAB DERUXTECAN-NXKI
     Dosage: 250 MG, ONCE EVERY 3 WK
     Route: 041
     Dates: start: 20221006, end: 20221006

REACTIONS (3)
  - Neutrophil count decreased [Recovered/Resolved]
  - Neutrophil count decreased [Recovered/Resolved]
  - Disease progression [Unknown]

NARRATIVE: CASE EVENT DATE: 20220818
